FAERS Safety Report 25337418 (Version 2)
Quarter: 2025Q2

REPORT INFORMATION
  Report Type: Spontaneous
  Country: US (occurrence: US)
  Receive Date: 20250520
  Receipt Date: 20250616
  Transmission Date: 20250717
  Serious: Yes (Other)
  Sender: BIOMARIN
  Company Number: US-SA-2025SA141351

PATIENT

DRUGS (1)
  1. LARONIDASE [Suspect]
     Active Substance: LARONIDASE
     Indication: Mucopolysaccharidosis I
     Dosage: 5 (UNITS UNKNOWN), QW
     Route: 042
     Dates: start: 202411

REACTIONS (4)
  - Pneumonia [Unknown]
  - Pyrexia [Unknown]
  - Dyspnoea [Unknown]
  - Poor venous access [Recovered/Resolved]

NARRATIVE: CASE EVENT DATE: 20250512
